FAERS Safety Report 18737140 (Version 2)
Quarter: 2021Q1

REPORT INFORMATION
  Report Type: Report from Study
  Country: US (occurrence: US)
  Receive Date: 20210113
  Receipt Date: 20210128
  Transmission Date: 20210419
  Serious: Yes (Other)
  Sender: FDA-Public Use
  Company Number: US-EISAI MEDICAL RESEARCH-EC-2020-085622

PATIENT
  Age: 74 Year
  Sex: Female
  Weight: 65.3 kg

DRUGS (11)
  1. ASPIRIN. [Concomitant]
     Active Substance: ASPIRIN
  2. FLONASE [Concomitant]
     Active Substance: FLUTICASONE PROPIONATE
  3. PROCHLORPERAZINE MALEATE. [Concomitant]
     Active Substance: PROCHLORPERAZINE MALEATE
  4. VASOTEC [Concomitant]
     Active Substance: ENALAPRIL MALEATE
  5. LORATADINE. [Concomitant]
     Active Substance: LORATADINE
  6. ABUTEROL SULFATE HFA [Concomitant]
  7. MINERAL OIL. [Concomitant]
     Active Substance: MINERAL OIL
  8. LENVIMA [Suspect]
     Active Substance: LENVATINIB
     Indication: UTERINE CANCER
     Route: 048
     Dates: start: 20201211, end: 202101
  9. GABAPENTIN. [Concomitant]
     Active Substance: GABAPENTIN
  10. ONDANSETRON [Concomitant]
     Active Substance: ONDANSETRON
  11. MINERAL OIL. [Concomitant]
     Active Substance: MINERAL OIL

REACTIONS (5)
  - Pulmonary embolism [Not Recovered/Not Resolved]
  - Fatigue [Recovering/Resolving]
  - Nausea [Recovered/Resolved]
  - Dysphonia [Recovered/Resolved]
  - Vomiting [Recovered/Resolved]

NARRATIVE: CASE EVENT DATE: 202012
